FAERS Safety Report 9066948 (Version 2)
Quarter: 2013Q1

REPORT INFORMATION
  Report Type: Report from Study
  Country: JP (occurrence: JP)
  Receive Date: 20130214
  Receipt Date: 20130329
  Transmission Date: 20140127
  Serious: Yes (Hospitalization)
  Sender: FDA-Public Use
  Company Number: JP-AMGEN-JPNCT2013010456

PATIENT
  Age: 79 Year
  Sex: Male

DRUGS (9)
  1. DARBEPOETIN ALFA [Suspect]
     Indication: NEPHROGENIC ANAEMIA
     Dosage: 30 MUG, Q4WK
     Route: 058
     Dates: start: 20110907, end: 20120319
  2. KREMEZIN [Suspect]
     Dosage: UNK
     Route: 048
  3. ARGAMATE [Concomitant]
     Dosage: UNK
     Route: 048
  4. ZYLORIC [Concomitant]
     Dosage: UNK
     Route: 048
  5. LUPRAC [Concomitant]
     Dosage: UNK
     Route: 048
  6. ATELEC [Concomitant]
     Dosage: UNK
     Route: 048
  7. SENNARIDE [Concomitant]
     Dosage: UNK
     Route: 048
  8. MAGNESIUM OXIDE [Concomitant]
     Dosage: UNK
     Route: 048
  9. URSO [Concomitant]
     Dosage: UNK
     Route: 048

REACTIONS (4)
  - Hepatic function abnormal [Recovered/Resolved]
  - Constipation [Recovering/Resolving]
  - Aspartate aminotransferase increased [None]
  - Alanine aminotransferase increased [None]
